FAERS Safety Report 12010763 (Version 1)
Quarter: 2016Q1

REPORT INFORMATION
  Report Type: Spontaneous
  Country: IT (occurrence: IT)
  Receive Date: 20160205
  Receipt Date: 20160205
  Transmission Date: 20160526
  Serious: Yes (Hospitalization)
  Sender: FDA-Public Use
  Company Number: IT-TEVA-630539ACC

PATIENT
  Age: 53 Year
  Sex: Female

DRUGS (4)
  1. TRIMETON - 10 MG/1 ML SOLUZIONE INIETTABILE [Concomitant]
     Indication: ANAPHYLAXIS PROPHYLAXIS
     Dosage: 10 MG
     Route: 042
     Dates: start: 20160107, end: 20160107
  2. RANITIDINE [Concomitant]
     Active Substance: RANITIDINE\RANITIDINE HYDROCHLORIDE
     Indication: PROPHYLAXIS AGAINST GASTROINTESTINAL ULCER
     Dosage: 40 MG
     Route: 042
     Dates: start: 20160107, end: 20160107
  3. PACLITAXEL TEVA - TEVA ITALIA S.R.L. [Suspect]
     Active Substance: PACLITAXEL
     Indication: BREAST CANCER
     Dosage: 130 MG TOTAL
     Route: 041
     Dates: start: 20160107, end: 20160107
  4. SOLDESAM [Concomitant]
     Active Substance: DEXAMETHASONE
     Indication: ANAPHYLAXIS PROPHYLAXIS
     Dosage: 12 MG
     Route: 042
     Dates: start: 20160107, end: 20160107

REACTIONS (6)
  - Dizziness [Recovered/Resolved]
  - Dysaesthesia pharynx [Recovered/Resolved]
  - Abdominal pain upper [Recovered/Resolved]
  - Tremor [Recovered/Resolved]
  - Headache [Recovered/Resolved]
  - Feeling hot [Recovered/Resolved]

NARRATIVE: CASE EVENT DATE: 20160107
